FAERS Safety Report 8121912-1 (Version None)
Quarter: 2011Q4

REPORT INFORMATION
  Report Type: 
  Country: None (occurrence: None)
  Receive Date: 20111227
  Receipt Date: 20111028
  Transmission Date: 20120403
  Serious: No
  Sender: FDA-Public Use
  Company Number: PHEH2011US06222

PATIENT
  Age: 58 Year
  Sex: Female

DRUGS (7)
  1. GILENYA [Suspect]
     Indication: MULTIPLE SCLEROSIS
     Dosage: 0.5 MG, QD, ORAL
     Route: 048
     Dates: start: 20110602
  2. WELLBUTRIN [Concomitant]
  3. EFFEXOR [Concomitant]
  4. MIMPEX [Concomitant]
  5. CALCIUM CARBONATE [Concomitant]
  6. MOBIC [Concomitant]
  7. NEURONTIN [Concomitant]

REACTIONS (2)
  - PHARYNGITIS [None]
  - CONJUNCTIVITIS [None]
